FAERS Safety Report 8376362-X (Version None)
Quarter: 2012Q2

REPORT INFORMATION
  Report Type: 
  Country: None (occurrence: None)
  Receive Date: 20120522
  Receipt Date: 20120508
  Transmission Date: 20120825
  Serious: Yes (Death, Life-Threatening, Hospitalization, Other)
  Sender: FDA-Public Use
  Company Number: US-MYLANLABS-2009AC000197

PATIENT
  Age: 65 Year
  Sex: Male
  Weight: 149.23 kg

DRUGS (60)
  1. CITALOPRAM HYDROBROMIDE [Concomitant]
  2. SYNTHROID [Concomitant]
  3. QUAALUDE [Concomitant]
  4. LODINE [Concomitant]
  5. COUMADIN [Concomitant]
  6. DIGOXIN [Suspect]
     Indication: PRODUCT USED FOR UNKNOWN INDICATION
     Route: 048
     Dates: start: 20020108, end: 20080118
  7. CELEXA [Concomitant]
  8. LOVASTATIN [Concomitant]
  9. VIGAMOX [Concomitant]
  10. DARVOCET [Concomitant]
  11. ZITHROMAX [Concomitant]
  12. IMDUR [Concomitant]
  13. BIAXIN [Concomitant]
  14. VIGAMOX [Concomitant]
  15. ASPIRIN [Concomitant]
  16. VERAPAMIL [Concomitant]
  17. ECONOPRED /00016201/ [Concomitant]
  18. KEFLEX [Concomitant]
  19. ELAVIL [Concomitant]
  20. MYLANTA [Concomitant]
  21. TAGAMET [Concomitant]
  22. ZYBAN [Concomitant]
  23. BACTRIM [Concomitant]
  24. COZAAR [Concomitant]
  25. ACTOS [Concomitant]
  26. NITROSTAT [Concomitant]
  27. VALIUM [Concomitant]
  28. DARVON [Concomitant]
  29. NEVANAC [Concomitant]
  30. DIPRIVAN [Concomitant]
  31. ANTABUSE [Concomitant]
  32. ZOLOFT [Concomitant]
  33. TYLENOL [Concomitant]
  34. AUGMENTIN [Concomitant]
  35. DALMANE [Concomitant]
  36. LIMBITROL /00033501/ [Concomitant]
  37. LITHIUM CARBONATE [Concomitant]
  38. MOTRIN [Concomitant]
  39. HALDOL [Concomitant]
  40. LASIX [Concomitant]
  41. NASACORT [Concomitant]
  42. KEFLEX [Concomitant]
  43. DIPRIVAN [Concomitant]
  44. VIOXX [Concomitant]
  45. EPINEPHRINE [Concomitant]
  46. HYZAAR [Concomitant]
  47. GLYBURIDE [Concomitant]
  48. VERELAN [Concomitant]
  49. POTASSIUM CHLORIDE [Concomitant]
  50. PRANDIN /00882701/ [Concomitant]
  51. CIPRO HC [Concomitant]
  52. VYTORIN [Concomitant]
  53. METFORMIN HCL [Concomitant]
  54. BYETTA [Concomitant]
  55. LISINOPRIL [Concomitant]
  56. TOFRANIL [Concomitant]
  57. DURATUSS /00920201/ [Concomitant]
  58. ZAROXOLYN [Concomitant]
  59. ASTELIN [Concomitant]
  60. PREVPAC [Concomitant]

REACTIONS (74)
  - FEAR [None]
  - DIABETES MELLITUS [None]
  - GASTROINTESTINAL HAEMORRHAGE [None]
  - CARDIOMYOPATHY [None]
  - CARDIO-RESPIRATORY ARREST [None]
  - ANAEMIA [None]
  - CUTIS LAXA [None]
  - ATELECTASIS [None]
  - HYPERTENSION [None]
  - CHRONIC OBSTRUCTIVE PULMONARY DISEASE [None]
  - PALLOR [None]
  - PULMONARY VASCULAR DISORDER [None]
  - TRANSAMINASES INCREASED [None]
  - ACQUIRED CARDIAC SEPTAL DEFECT [None]
  - PAIN [None]
  - RESPIRATORY FAILURE [None]
  - VISION BLURRED [None]
  - CARDIAC FAILURE CONGESTIVE [None]
  - ELECTROENCEPHALOGRAM ABNORMAL [None]
  - VENTRICULAR EXTRASYSTOLES [None]
  - CONJUNCTIVAL HYPERAEMIA [None]
  - ILL-DEFINED DISORDER [None]
  - VENTRICULAR FIBRILLATION [None]
  - UNRESPONSIVE TO STIMULI [None]
  - CARDIAC ARREST [None]
  - MYOCARDIAL ISCHAEMIA [None]
  - ATRIAL TACHYCARDIA [None]
  - CAROTID ARTERY STENOSIS [None]
  - OCULAR HYPERAEMIA [None]
  - INJURY [None]
  - HYPOXIC-ISCHAEMIC ENCEPHALOPATHY [None]
  - EJECTION FRACTION DECREASED [None]
  - DEEP VEIN THROMBOSIS [None]
  - ENDOTRACHEAL INTUBATION [None]
  - ATRIOVENTRICULAR BLOCK SECOND DEGREE [None]
  - HYPOKALAEMIA [None]
  - CARDIOGENIC SHOCK [None]
  - DRUG LEVEL BELOW THERAPEUTIC [None]
  - DIPLOPIA [None]
  - CIRCULATORY COLLAPSE [None]
  - CHEST PAIN [None]
  - ABDOMINAL DISTENSION [None]
  - RALES [None]
  - CARDIOMEGALY [None]
  - CARDIAC VALVE DISEASE [None]
  - COMA SCALE ABNORMAL [None]
  - INTRAOCULAR LENS IMPLANT [None]
  - ECONOMIC PROBLEM [None]
  - ANXIETY [None]
  - APNOEA [None]
  - HYPERLIPIDAEMIA [None]
  - BRADYCARDIA [None]
  - DECREASED INTEREST [None]
  - REFUSAL OF TREATMENT BY PATIENT [None]
  - DEATH [None]
  - BLOOD GLUCOSE INCREASED [None]
  - DIABETES MELLITUS INADEQUATE CONTROL [None]
  - VENTRICULAR TACHYCARDIA [None]
  - MECHANICAL VENTILATION [None]
  - ARTERIOSCLEROSIS CORONARY ARTERY [None]
  - WOUND COMPLICATION [None]
  - ATRIAL FIBRILLATION [None]
  - RESUSCITATION [None]
  - DEPRESSION [None]
  - DYSPNOEA [None]
  - MYOCARDIAL INFARCTION [None]
  - CORONARY ARTERY DISEASE [None]
  - PLEURAL EFFUSION [None]
  - COMA [None]
  - VISUAL ACUITY REDUCED [None]
  - OBESITY [None]
  - BUNDLE BRANCH BLOCK RIGHT [None]
  - LEFT VENTRICULAR DYSFUNCTION [None]
  - TREATMENT FAILURE [None]
